FAERS Safety Report 12010582 (Version 2)
Quarter: 2018Q1

REPORT INFORMATION
  Report Type: Other
  Country: CA (occurrence: CA)
  Receive Date: 20160205
  Receipt Date: 20180124
  Transmission Date: 20180508
  Serious: Yes (Hospitalization, Congenital Anomaly)
  Sender: FDA-Public Use
  Company Number: CA-DUCHESNAY INC.-1047379

PATIENT
  Sex: Female

DRUGS (4)
  1. DICLEGIS [Suspect]
     Active Substance: DOXYLAMINE SUCCINATE\PYRIDOXINE HYDROCHLORIDE
  2. ELAVIL [Suspect]
     Active Substance: AMITRIPTYLINE HYDROCHLORIDE
  3. REMICADE [Suspect]
     Active Substance: INFLIXIMAB
     Route: 042
  4. PRENATAL MULTIPLE VITAMIN [Concomitant]

REACTIONS (3)
  - Trisomy 21 [Unknown]
  - Cardiac septal defect [Unknown]
  - Congenital aortic anomaly [Unknown]
